FAERS Safety Report 23230571 (Version 1)
Quarter: 2023Q4

REPORT INFORMATION
  Report Type: Spontaneous
  Country: US (occurrence: None)
  Receive Date: 20231122
  Receipt Date: 20231122
  Transmission Date: 20240109
  Serious: Yes (Other)
  Sender: FDA-Public Use
  Company Number: None

PATIENT
  Sex: Female

DRUGS (20)
  1. RITUXAN [Suspect]
     Active Substance: RITUXIMAB
     Indication: Product used for unknown indication
     Route: 042
     Dates: start: 20230725, end: 20230808
  2. LYRICA [Concomitant]
     Active Substance: PREGABALIN
  3. IBUPROFEN [Concomitant]
     Active Substance: IBUPROFEN
  4. GABAPENTIN [Concomitant]
     Active Substance: GABAPENTIN
  5. AMLODIPINE [Concomitant]
     Active Substance: AMLODIPINE BESYLATE
  6. LEXIPRO [Concomitant]
  7. LOSARTAN [Concomitant]
     Active Substance: LOSARTAN
  8. METFORMIN [Concomitant]
     Active Substance: METFORMIN HYDROCHLORIDE
  9. LETROZOLE [Concomitant]
     Active Substance: LETROZOLE
  10. LANTUS [Concomitant]
     Active Substance: INSULIN GLARGINE
  11. NOVOLOG [Concomitant]
     Active Substance: INSULIN ASPART
  12. PROAIR HFA [Concomitant]
     Active Substance: ALBUTEROL SULFATE
  13. QVAR [Concomitant]
     Active Substance: BECLOMETHASONE DIPROPIONATE
  14. MONTELUKAST [Concomitant]
     Active Substance: MONTELUKAST SODIUM
  15. FLUTICASONE [Concomitant]
     Active Substance: FLUTICASONE
  16. SUMATRIPTAN [Concomitant]
     Active Substance: SUMATRIPTAN
  17. VITAMINS [Concomitant]
     Active Substance: VITAMINS
  18. CALCIUM W/MAGNESIUM, ZINC [Concomitant]
  19. VITAMIN D3 [Concomitant]
     Active Substance: CHOLECALCIFEROL
  20. EXCEDRIN [Concomitant]
     Active Substance: ACETAMINOPHEN\ASPIRIN\CAFFEINE

REACTIONS (7)
  - Dyspnoea [None]
  - Arthralgia [None]
  - Fatigue [None]
  - Arthralgia [None]
  - Pain in extremity [None]
  - Pain in extremity [None]
  - Mobility decreased [None]

NARRATIVE: CASE EVENT DATE: 20231109
